FAERS Safety Report 8977658 (Version 2)
Quarter: 2013Q1

REPORT INFORMATION
  Report Type: Spontaneous
  Country: US (occurrence: US)
  Receive Date: 20121220
  Receipt Date: 20130110
  Transmission Date: 20140127
  Serious: No
  Sender: FDA-Public Use
  Company Number: US-PFIZER INC-2012318288

PATIENT
  Age: 77 Year
  Sex: Male

DRUGS (8)
  1. XALKORI [Suspect]
     Indication: LUNG NEOPLASM MALIGNANT
     Dosage: 250 MG, 2X/DAY
     Route: 048
     Dates: start: 201110
  2. FOLIC ACID [Concomitant]
     Dosage: 1 MG, UNK
     Route: 048
  3. TESSALON [Concomitant]
     Dosage: 100 MG, UNK
     Route: 048
  4. SERTRALINE [Concomitant]
     Dosage: 50 MG, UNK
     Route: 048
  5. PROCHLOR [Concomitant]
     Dosage: 10 MG, UNK
     Route: 048
  6. TETRACYCLINE [Concomitant]
     Dosage: 500 MG, UNK
     Route: 048
  7. FISH OIL [Concomitant]
     Dosage: UNK
     Route: 048
  8. HYDROCO/APAP [Concomitant]
     Dosage: 7.5-500, UNK

REACTIONS (2)
  - Oedema peripheral [Unknown]
  - Blood creatinine increased [Unknown]
